FAERS Safety Report 21375267 (Version 1)
Quarter: 2022Q3

REPORT INFORMATION
  Report Type: Spontaneous
  Country: US (occurrence: None)
  Receive Date: 20220923
  Receipt Date: 20220923
  Transmission Date: 20221027
  Serious: Yes (unspecified)
  Sender: FDA-Public Use
  Company Number: None

PATIENT
  Age: 62 Year
  Sex: Male
  Weight: 92.53 kg

DRUGS (1)
  1. CASIRIVIMAB\IMDEVIMAB [Suspect]
     Active Substance: CASIRIVIMAB\IMDEVIMAB
     Indication: COVID-19
     Dosage: 600 MG ONCE IV?
     Route: 042
     Dates: start: 20211222

REACTIONS (5)
  - Angina pectoris [None]
  - Headache [None]
  - Cough [None]
  - Wheezing [None]
  - Infusion related reaction [None]

NARRATIVE: CASE EVENT DATE: 20211222
